FAERS Safety Report 10033408 (Version 1)
Quarter: 2014Q1

REPORT INFORMATION
  Report Type: Spontaneous
  Country: US (occurrence: US)
  Receive Date: 20140325
  Receipt Date: 20140325
  Transmission Date: 20141002
  Serious: No
  Sender: FDA-Public Use
  Company Number: US-009507513-1403USA009319

PATIENT
  Sex: Male

DRUGS (5)
  1. INVANZ [Suspect]
     Indication: URINARY TRACT INFECTION
     Dosage: 1 G, UNK
     Route: 042
     Dates: start: 201312, end: 201312
  2. INVANZ [Suspect]
     Indication: PROSTATITIS
  3. CIPRO (CIPROFLOXACIN) [Concomitant]
     Indication: BIOPSY
     Dosage: 1 DF, ONCE
     Dates: start: 201312
  4. CIPRO (CIPROFLOXACIN) [Concomitant]
     Dosage: 1 DF, ONCE
     Dates: start: 201312
  5. CIPRO (CIPROFLOXACIN) [Concomitant]
     Dosage: 1 DF, ONCE
     Dates: start: 201312

REACTIONS (2)
  - Pyrexia [Recovered/Resolved]
  - Disease recurrence [Recovered/Resolved]
